APPROVED DRUG PRODUCT: HEPARIN SODIUM PRESERVATIVE FREE
Active Ingredient: HEPARIN SODIUM
Strength: 10,000 UNITS/ML
Dosage Form/Route: INJECTABLE;INJECTION
Application: N017029 | Product #019 | TE Code: AP
Applicant: FRESENIUS KABI USA LLC
Approved: Nov 22, 2010 | RLD: Yes | RS: Yes | Type: RX